FAERS Safety Report 20620899 (Version 1)
Quarter: 2022Q1

REPORT INFORMATION
  Report Type: Spontaneous
  Country: US (occurrence: None)
  Receive Date: 20220321
  Receipt Date: 20220321
  Transmission Date: 20220423
  Serious: Yes (Hospitalization)
  Sender: FDA-Public Use
  Company Number: None

PATIENT
  Age: 30 Year

DRUGS (1)
  1. VIVITROL [Suspect]
     Active Substance: NALTREXONE
     Dosage: OTHER FREQUENCY : 30 DAYS;?
     Route: 030

REACTIONS (2)
  - Dry gangrene [None]
  - Injection site haematoma [None]

NARRATIVE: CASE EVENT DATE: 20220318
